FAERS Safety Report 6763465-6 (Version None)
Quarter: 2010Q2

REPORT INFORMATION
  Report Type: 
  Country: None (occurrence: None)
  Receive Date: 20100608
  Receipt Date: 20100603
  Transmission Date: 20101027
  Serious: Yes (Life-Threatening, Hospitalization, Other)
  Sender: FDA-Public Use
  Company Number: 20108874

PATIENT
  Age: 28 Year
  Sex: Male

DRUGS (3)
  1. LIORESAL [Suspect]
     Indication: MUSCLE SPASTICITY
     Dosage: 96 MCG DAILY INTRATHECAL
     Route: 037
  2. ORAL BACLOFEN [Concomitant]
  3. VALIUM [Concomitant]

REACTIONS (2)
  - DEVICE RELATED INFECTION [None]
  - MENINGITIS [None]
